FAERS Safety Report 4918476-X (Version None)
Quarter: 2006Q1

REPORT INFORMATION
  Report Type: 
  Country: None (occurrence: None)
  Receive Date: 20060222
  Receipt Date: 20060210
  Transmission Date: 20060701
  Serious: Yes (Hospitalization)
  Sender: FDA-Public Use
  Company Number: US-JNJFOC-20050802233

PATIENT
  Sex: Female
  Weight: 73.94 kg

DRUGS (6)
  1. REMINYL [Suspect]
     Dates: start: 20050727
  2. REMINYL [Suspect]
     Dates: start: 20050727
  3. LASIX [Concomitant]
     Indication: DIURETIC THERAPY
     Route: 048
  4. SYNTHROID [Concomitant]
     Indication: HORMONE REPLACEMENT THERAPY
     Route: 048
  5. COREG [Concomitant]
     Indication: CARDIAC DISORDER
     Route: 048
  6. LISINOPRIL [Concomitant]
     Indication: BLOOD PRESSURE
     Route: 048

REACTIONS (6)
  - CHOLELITHIASIS [None]
  - DIZZINESS [None]
  - HEMIPARESIS [None]
  - HYPERTENSION [None]
  - PARAESTHESIA [None]
  - TRANSIENT ISCHAEMIC ATTACK [None]
